FAERS Safety Report 9274569 (Version 1)
Quarter: 2013Q2

REPORT INFORMATION
  Report Type: Spontaneous
  Country: US (occurrence: US)
  Receive Date: 20130507
  Receipt Date: 20130507
  Transmission Date: 20140414
  Serious: Yes (Other)
  Sender: FDA-Public Use
  Company Number: US-009507513-1305USA001411

PATIENT
  Sex: Female
  Weight: 47.62 kg

DRUGS (2)
  1. IMPLANON [Suspect]
     Indication: CONTRACEPTION
     Dosage: 1 ROD UP TO 3 YEARS
     Route: 059
     Dates: start: 20111229
  2. IMPLANON [Suspect]
     Indication: MENSTRUATION IRREGULAR

REACTIONS (11)
  - Abortion spontaneous [Unknown]
  - Unintended pregnancy [Recovered/Resolved]
  - Weight decreased [Unknown]
  - Decreased appetite [Unknown]
  - Abdominal pain upper [Unknown]
  - Haemoptysis [Unknown]
  - Menometrorrhagia [Unknown]
  - Headache [Unknown]
  - Acne [Unknown]
  - Depression [Unknown]
  - Diabetes mellitus [Unknown]
